FAERS Safety Report 7595297-3 (Version None)
Quarter: 2011Q3

REPORT INFORMATION
  Report Type: 
  Country: None (occurrence: None)
  Receive Date: 20110707
  Receipt Date: 20110625
  Transmission Date: 20111222
  Serious: Yes (Disabling)
  Sender: FDA-Public Use
  Company Number: US-KINGPHARMUSA00001-K201100764

PATIENT
  Sex: Male

DRUGS (1)
  1. EMBEDA [Suspect]
     Dosage: UNK

REACTIONS (1)
  - COLON INJURY [None]
